FAERS Safety Report 6624984-6 (Version None)
Quarter: 2010Q1

REPORT INFORMATION
  Report Type: 
  Country: None (occurrence: None)
  Receive Date: 20100310
  Receipt Date: 20090918
  Transmission Date: 20100710
  Serious: No
  Sender: FDA-Public Use
  Company Number: US-BIOGENIDEC-2009BI030262

PATIENT
  Age: 52 Year
  Sex: Female

DRUGS (5)
  1. AVONEX [Suspect]
     Indication: MULTIPLE SCLEROSIS
     Route: 030
     Dates: start: 20090618
  2. LYRICA [Concomitant]
     Indication: INSOMNIA
     Dates: start: 20090601
  3. LYRICA [Concomitant]
     Indication: PAIN OF SKIN
     Dates: start: 20090601
  4. TYLENOL PM [Concomitant]
     Indication: PAIN OF SKIN
     Dates: start: 20090601
  5. TYLENOL PM [Concomitant]
     Indication: INSOMNIA
     Dates: start: 20090601

REACTIONS (4)
  - HEADACHE [None]
  - INSOMNIA [None]
  - PAIN [None]
  - PAIN OF SKIN [None]
